FAERS Safety Report 22347842 (Version 1)
Quarter: 2023Q2

REPORT INFORMATION
  Report Type: Spontaneous
  Country: GB (occurrence: None)
  Receive Date: 20230522
  Receipt Date: 20230522
  Transmission Date: 20230722
  Serious: Yes (Life-Threatening, Other)
  Sender: FDA-Public Use
  Company Number: GB-MHRA-MED-202305051317177670-JBSPM

PATIENT
  Age: 2 Year
  Sex: Female
  Weight: 10 kg

DRUGS (4)
  1. ATRACURIUM [Suspect]
     Active Substance: ATRACURIUM
     Indication: Anaesthesia
     Route: 042
     Dates: start: 20230505, end: 20230505
  2. ATRACURIUM [Suspect]
     Active Substance: ATRACURIUM
     Indication: Ventriculo-peritoneal shunt
  3. PROPOFOL [Concomitant]
     Active Substance: PROPOFOL
     Indication: Anaesthesia
     Dosage: UNKNOWN
     Route: 042
     Dates: start: 20230505, end: 20230505
  4. REMIFENTANIL [Concomitant]
     Active Substance: REMIFENTANIL
     Indication: Anaesthesia
     Dosage: UNKNOWN
     Route: 042

REACTIONS (3)
  - Circulatory collapse [Unknown]
  - Anaphylactic reaction [Not Recovered/Not Resolved]
  - Bronchospasm [Unknown]

NARRATIVE: CASE EVENT DATE: 20230505
